FAERS Safety Report 11973760 (Version 1)
Quarter: 2016Q1

REPORT INFORMATION
  Report Type: Report from Study
  Country: US (occurrence: US)
  Receive Date: 20160128
  Receipt Date: 20160128
  Transmission Date: 20160526
  Serious: Yes (Other)
  Sender: FDA-Public Use
  Company Number: US-ABBVIE-15K-163-1397684-00

PATIENT
  Age: 67 Year
  Sex: Female

DRUGS (2)
  1. HUMIRA [Suspect]
     Active Substance: ADALIMUMAB
     Indication: PSORIASIS
     Route: 058
     Dates: start: 201505, end: 201505
  2. HUMIRA [Suspect]
     Active Substance: ADALIMUMAB
     Indication: PSORIASIS
     Route: 058
     Dates: start: 201505, end: 20150519

REACTIONS (3)
  - Device issue [Not Recovered/Not Resolved]
  - Abdominal pain upper [Recovering/Resolving]
  - Kidney infection [Recovering/Resolving]

NARRATIVE: CASE EVENT DATE: 20150506
